FAERS Safety Report 19027693 (Version 1)
Quarter: 2021Q1

REPORT INFORMATION
  Report Type: Spontaneous
  Country: JP (occurrence: JP)
  Receive Date: 20210319
  Receipt Date: 20210319
  Transmission Date: 20210420
  Serious: Yes (Death, Other)
  Sender: FDA-Public Use
  Company Number: JP-AMGEN-JPNSP2019135882

PATIENT
  Age: 10 Decade
  Sex: Male

DRUGS (5)
  1. ROMIPLATE [Suspect]
     Active Substance: ROMIPLOSTIM
     Dosage: UNK, QWK
     Route: 058
  2. ROMIPLATE [Suspect]
     Active Substance: ROMIPLOSTIM
     Indication: APLASTIC ANAEMIA
     Dosage: 6 MICROGRAM/KILOGRAM
     Route: 058
  3. ROMIPLATE [Suspect]
     Active Substance: ROMIPLOSTIM
     Dosage: 16 MICROGRAM/KILOGRAM
     Route: 058
  4. ROMIPLATE [Suspect]
     Active Substance: ROMIPLOSTIM
     Dosage: 20 MICROGRAM/KILOGRAM, Q2WK
     Route: 058
     Dates: start: 202003
  5. ROMIPLATE [Suspect]
     Active Substance: ROMIPLOSTIM
     Dosage: 12 MICROGRAM/KILOGRAM
     Route: 058

REACTIONS (3)
  - Inappropriate schedule of product administration [Unknown]
  - Death [Fatal]
  - Oedema [Unknown]
